FAERS Safety Report 23825101 (Version 2)
Quarter: 2024Q4

REPORT INFORMATION
  Report Type: Report from Study
  Country: US (occurrence: US)
  Receive Date: 20240507
  Receipt Date: 20241018
  Transmission Date: 20250115
  Serious: No
  Sender: ROCHE
  Company Number: US-ROCHE-3493666

PATIENT
  Age: 74 Year
  Sex: Female
  Weight: 62.14 kg

DRUGS (2)
  1. XOLAIR [Suspect]
     Active Substance: OMALIZUMAB
     Indication: Chronic spontaneous urticaria
     Dosage: RECEIVES ONE INJECTION IN EACH ARM WHEN HAVING XOLAIR ADMINISTERED
     Route: 058
     Dates: start: 202311
  2. XOLAIR [Suspect]
     Active Substance: OMALIZUMAB
     Indication: Urticaria

REACTIONS (6)
  - Urticaria [Not Recovered/Not Resolved]
  - Paraesthesia [Not Recovered/Not Resolved]
  - Muscle strain [Not Recovered/Not Resolved]
  - Gait disturbance [Not Recovered/Not Resolved]
  - Pain [Not Recovered/Not Resolved]
  - Urticaria [Unknown]

NARRATIVE: CASE EVENT DATE: 20231201
